FAERS Safety Report 5097208-1 (Version None)
Quarter: 2006Q3

REPORT INFORMATION
  Report Type: 
  Country: None (occurrence: None)
  Receive Date: 20060906
  Receipt Date: 20060621
  Transmission Date: 20061208
  Serious: Yes (Life-Threatening, Hospitalization)
  Sender: FDA-Public Use
  Company Number: JP-ROCHE-452573

PATIENT
  Age: 81 Year
  Sex: Female

DRUGS (8)
  1. LUPRAC [Suspect]
     Indication: CARDIAC FAILURE
     Route: 048
     Dates: start: 20060425, end: 20060611
  2. PANALDINE [Suspect]
     Indication: ACUTE MYOCARDIAL INFARCTION
     Route: 048
     Dates: start: 20060425, end: 20060611
  3. LIPOVAS [Suspect]
     Indication: HYPERLIPIDAEMIA
     Route: 048
     Dates: start: 20060425, end: 20060611
  4. BLOPRESS [Suspect]
     Indication: HYPERTENSION
     Route: 048
     Dates: start: 20060425, end: 20060611
  5. TAKEPRON [Suspect]
     Indication: REFLUX OESOPHAGITIS
     Route: 048
     Dates: start: 20060425, end: 20060611
  6. ALDACTONE [Concomitant]
     Indication: DRUG USE FOR UNKNOWN INDICATION
     Route: 048
  7. SIGMART [Concomitant]
     Dates: start: 20060425
  8. 8-HOUR BAYER [Concomitant]
     Indication: MYOCARDIAL INFARCTION
     Route: 048
     Dates: start: 20060425

REACTIONS (3)
  - AGRANULOCYTOSIS [None]
  - MALAISE [None]
  - SEPSIS [None]
